FAERS Safety Report 4651741-2 (Version None)
Quarter: 2005Q2

REPORT INFORMATION
  Report Type: 
  Country: None (occurrence: None)
  Receive Date: 20050404
  Receipt Date: 20041230
  Transmission Date: 20051028
  Serious: No
  Sender: FDA-Public Use
  Company Number: USA050187226

PATIENT
  Age: 29 Year
  Sex: Female

DRUGS (2)
  1. CYMBALTA [Suspect]
     Indication: ANXIETY
     Dosage: 60 MG DAY
     Dates: start: 20041201
  2. EFFEXOR [Concomitant]

REACTIONS (3)
  - CONTUSION [None]
  - PRURITUS [None]
  - RASH [None]
